FAERS Safety Report 5447235-7 (Version None)
Quarter: 2007Q3

REPORT INFORMATION
  Report Type: 
  Country: None (occurrence: None)
  Receive Date: 20070910
  Receipt Date: 20070830
  Transmission Date: 20080115
  Serious: Yes (Death)
  Sender: FDA-Public Use
  Company Number: FR-ELI_LILLY_AND_COMPANY-FR200708006269

PATIENT
  Age: 37 Year
  Sex: Female
  Weight: 100 kg

DRUGS (8)
  1. ZYPREXA [Suspect]
     Indication: AGITATION
     Dosage: 10 MG, OTHER
     Route: 030
     Dates: start: 20070801, end: 20070801
  2. LOXAPAC [Concomitant]
     Indication: AGITATION
     Dosage: 250 MG, OTHER
     Route: 030
     Dates: start: 20070801, end: 20070801
  3. LOXAPAC [Concomitant]
     Dosage: UNK, UNKNOWN
     Route: 048
     Dates: start: 20070801
  4. CLONAZEPAM [Concomitant]
     Indication: AGITATION
     Dosage: 2 MG, 2/D
     Route: 030
     Dates: start: 20070801, end: 20070801
  5. CLONAZEPAM [Concomitant]
     Dosage: UNK, UNKNOWN
     Route: 048
     Dates: start: 20070801
  6. ZYPREXA [Suspect]
     Dosage: 10 MG, 2/D
     Route: 048
     Dates: start: 20070801
  7. LOXAPAC [Concomitant]
     Route: 048
     Dates: start: 20070801, end: 20070801
  8. CLONAZEPAM [Concomitant]
     Route: 048
     Dates: start: 20070801, end: 20070801

REACTIONS (3)
  - ACUTE PULMONARY OEDEMA [None]
  - BRAIN OEDEMA [None]
  - PULMONARY EMBOLISM [None]
